FAERS Safety Report 9255729 (Version 3)
Quarter: 2016Q2

REPORT INFORMATION
  Report Type: Spontaneous
  Country: US (occurrence: US)
  Receive Date: 20130425
  Receipt Date: 20160511
  Transmission Date: 20160815
  Serious: Yes (Other)
  Sender: FDA-Public Use
  Company Number: US-009507513-1304USA014628

PATIENT
  Sex: Male
  Weight: 80.73 kg

DRUGS (11)
  1. PROPECIA [Suspect]
     Active Substance: FINASTERIDE
     Indication: ANDROGENETIC ALOPECIA
     Dosage: 1 MG, QD
     Route: 048
     Dates: start: 20060518, end: 20070819
  2. PROPECIA [Suspect]
     Active Substance: FINASTERIDE
     Dosage: 1 MG, QD
     Route: 048
     Dates: start: 20080311, end: 20090612
  3. PROPECIA [Suspect]
     Active Substance: FINASTERIDE
     Dosage: 1 MG, QD
     Route: 048
     Dates: start: 20080221, end: 20080226
  4. PROPECIA [Suspect]
     Active Substance: FINASTERIDE
     Dosage: 1 MG, QD
     Route: 048
     Dates: start: 20071003, end: 20071016
  5. ROGAINE [Concomitant]
     Active Substance: MINOXIDIL
     Indication: ANDROGENETIC ALOPECIA
     Dosage: 5 %, QD
     Route: 061
     Dates: start: 20071003, end: 20090105
  6. ACCUTANE [Concomitant]
     Active Substance: ISOTRETINOIN
     Indication: ACNE CYSTIC
  7. TRETINOIN. [Concomitant]
     Active Substance: TRETINOIN
     Indication: ACNE CYSTIC
     Dosage: 0.05 %, QPM
     Route: 061
     Dates: start: 20071003, end: 20071016
  8. DOXYCYCLINE HYCLATE. [Concomitant]
     Active Substance: DOXYCYCLINE HYCLATE
     Indication: ACNE CYSTIC
     Dosage: 100 MG, UNK
     Route: 048
     Dates: start: 20091124
  9. BENZOYL PEROXIDE. [Concomitant]
     Active Substance: BENZOYL PEROXIDE
     Indication: ACNE CYSTIC
     Dosage: 5 %, BID
     Route: 061
     Dates: start: 20071003, end: 20090104
  10. FINASTERIDE. [Suspect]
     Active Substance: FINASTERIDE
     Indication: ANDROGENETIC ALOPECIA
     Dosage: 1 MG, UNK
     Route: 048
  11. BENZOYL PEROXIDE (+) ERYTHROMYCIN [Concomitant]
     Indication: ACNE CYSTIC
     Dosage: 3-5%
     Route: 061
     Dates: start: 20091124

REACTIONS (16)
  - Anogenital warts [Unknown]
  - Acrochordon [Unknown]
  - Psychosexual disorder [Unknown]
  - Anxiety [Unknown]
  - Blood testosterone increased [Recovered/Resolved]
  - Skin papilloma [Unknown]
  - Fungal skin infection [Unknown]
  - Gynaecomastia [Unknown]
  - Erectile dysfunction [Not Recovered/Not Resolved]
  - Neoplasm [Unknown]
  - Sexual dysfunction [Not Recovered/Not Resolved]
  - Mass excision [Unknown]
  - Melanocytic naevus [Unknown]
  - Deafness [Unknown]
  - Treatment failure [Unknown]
  - Stress [Unknown]

NARRATIVE: CASE EVENT DATE: 20060518
